FAERS Safety Report 15352774 (Version 1)
Quarter: 2018Q3

REPORT INFORMATION
  Report Type: Report from Study
  Country: BR (occurrence: BR)
  Receive Date: 20180905
  Receipt Date: 20180905
  Transmission Date: 20181010
  Serious: Yes (Death, Hospitalization, Disabling, Other)
  Sender: FDA-Public Use
  Company Number: BR-SEATTLE GENETICS-2018SGN01969

PATIENT
  Sex: Male

DRUGS (1)
  1. BRENTUXIMAB VEDOTIN?MPI [Suspect]
     Active Substance: BRENTUXIMAB VEDOTIN
     Indication: HODGKIN^S DISEASE
     Dosage: UNK, Q21D
     Route: 042
     Dates: start: 2018

REACTIONS (9)
  - Hodgkin^s disease [Fatal]
  - Pericardial effusion [Unknown]
  - Pleural effusion [Unknown]
  - Speech disorder [Unknown]
  - Mastication disorder [Unknown]
  - Respiratory failure [Fatal]
  - Metastases to lung [Fatal]
  - Gait disturbance [Unknown]
  - Dyspnoea [Unknown]

NARRATIVE: CASE EVENT DATE: 2018
